FAERS Safety Report 5015482-4 (Version None)
Quarter: 2006Q2

REPORT INFORMATION
  Report Type: 
  Country: None (occurrence: None)
  Receive Date: 20060530
  Receipt Date: 20060530
  Transmission Date: 20061013
  Serious: Yes (Other)
  Sender: FDA-Public Use
  Company Number: None

PATIENT
  Age: 62 Year
  Sex: Male
  Weight: 93.7 kg

DRUGS (14)
  1. OXYBUTYNIN CHLORIDE [Suspect]
  2. BACLOFEN [Concomitant]
  3. DOCUSATE NA [Concomitant]
  4. RANITIDINE HCL [Concomitant]
  5. NIFEDIPINE (WATSON -CC) [Concomitant]
  6. PAROXETINE HCL [Concomitant]
  7. TIZANIDINE HCL [Concomitant]
  8. ATENOLOL [Concomitant]
  9. NITROGLYCERIN [Concomitant]
  10. SIMVASTATIN [Concomitant]
  11. CLONAZEPAM [Concomitant]
  12. GABAPENTIN [Concomitant]
  13. ISOSORBIDE DINITRATE [Concomitant]
  14. IBUPROFEN [Concomitant]

REACTIONS (2)
  - CONSTIPATION [None]
  - DRY MOUTH [None]
